FAERS Safety Report 8836567 (Version 1)
Quarter: 2012Q4

REPORT INFORMATION
  Report Type: Spontaneous
  Country: US (occurrence: None)
  Receive Date: 20121009
  Receipt Date: 20121009
  Transmission Date: 20130627
  Serious: Yes (Other)
  Sender: FDA-Public Use
  Company Number: AUR-APL-2012-04219

PATIENT
  Age: 16 Year
  Sex: Female

DRUGS (4)
  1. FLUOXETINE [Suspect]
     Route: 048
  2. QUETIAPINE [Suspect]
     Route: 048
  3. ZIPRASIDONE [Suspect]
     Indication: DRUG USE FOR UNKNOWN INDICATION
     Route: 048
  4. ZIPRASIDONE [Suspect]
     Indication: DRUG USE FOR UNKNOWN INDICATION
     Route: 048

REACTIONS (11)
  - Breast pain [None]
  - Breast enlargement [None]
  - Galactorrhoea [None]
  - Pelvic pain [None]
  - White blood cells urine positive [None]
  - Nitrite urine present [None]
  - Hallucinations, mixed [None]
  - Bacillus test positive [None]
  - Hostility [None]
  - Mood altered [None]
  - Drug ineffective [None]
